FAERS Safety Report 4479682-4 (Version None)
Quarter: 2004Q4

REPORT INFORMATION
  Report Type: 
  Country: None (occurrence: None)
  Receive Date: 20041020
  Receipt Date: 20041008
  Transmission Date: 20050328
  Serious: Yes (Other)
  Sender: FDA-Public Use
  Company Number: GB-GLAXOSMITHKLINE-B0347882A

PATIENT
  Age: 70 Year
  Sex: Male

DRUGS (2)
  1. SEROXAT [Suspect]
     Dosage: 20MG PER DAY
  2. NO CONCURRENT MEDICATION [Concomitant]

REACTIONS (3)
  - ANXIETY [None]
  - CRYING [None]
  - HALLUCINATION [None]
